FAERS Safety Report 8589350-5 (Version None)
Quarter: 2012Q3

REPORT INFORMATION
  Report Type: 
  Country: None (occurrence: None)
  Receive Date: 20120813
  Receipt Date: 20120802
  Transmission Date: 20120928
  Serious: Yes (Death)
  Sender: FDA-Public Use
  Company Number: FR-BAXTER-2012BAX013489

PATIENT
  Age: 61 Year
  Sex: Male

DRUGS (11)
  1. MABTHERA [Suspect]
     Route: 042
     Dates: start: 20110207, end: 20110620
  2. VALACYCLOVIR HYDROCHLORIDE [Concomitant]
     Indication: PROPHYLAXIS
     Route: 065
     Dates: start: 20110207
  3. PERINDOPRIL ERBUMINE [Concomitant]
     Route: 065
  4. PLAVIX [Concomitant]
     Indication: AORTIC STENT INSERTION
     Route: 065
     Dates: start: 19980101, end: 19980101
  5. CYCLOPHOSPHAMIDE [Suspect]
     Route: 042
     Dates: start: 20110207, end: 20110620
  6. FLUDARABINE PHOSPHATE [Suspect]
     Route: 042
     Dates: start: 20110207, end: 20110620
  7. BACTRIM [Concomitant]
     Indication: PROPHYLAXIS
     Route: 065
     Dates: start: 20110207
  8. PRAXILENE [Concomitant]
     Indication: CORONARY ANGIOPLASTY
     Route: 065
     Dates: start: 19980101, end: 19980101
  9. FENOFIBRATE [Concomitant]
     Route: 065
  10. PRAXILENE [Concomitant]
     Route: 065
     Dates: start: 20010101, end: 20010101
  11. NICORANDIL [Concomitant]
     Indication: ANGINA PECTORIS
     Route: 065

REACTIONS (1)
  - PROGRESSIVE MULTIFOCAL LEUKOENCEPHALOPATHY [None]
